FAERS Safety Report 5743950-6 (Version None)
Quarter: 2008Q2

REPORT INFORMATION
  Report Type: 
  Country: None (occurrence: None)
  Receive Date: 20080520
  Receipt Date: 20080516
  Transmission Date: 20081010
  Serious: Yes (Death)
  Sender: FDA-Public Use
  Company Number: CN-ASTRAZENECA-2008AP03740

PATIENT
  Age: 60 Year
  Sex: Male

DRUGS (4)
  1. NEXIUM [Suspect]
     Indication: GASTRIC ULCER
     Route: 048
     Dates: start: 20080201
  2. ASPIRIN [Concomitant]
  3. ANTIBIOTICS [Concomitant]
  4. PLAVIX [Concomitant]

REACTIONS (2)
  - DEATH [None]
  - MUSCULAR WEAKNESS [None]
